FAERS Safety Report 6327780-2 (Version None)
Quarter: 2009Q3

REPORT INFORMATION
  Report Type: 
  Country: None (occurrence: None)
  Receive Date: 20090825
  Receipt Date: 20090811
  Transmission Date: 20100115
  Serious: Yes (Death, Life-Threatening, Hospitalization, Disabling, Other)
  Sender: FDA-Public Use
  Company Number: NL-MERCK-0908NLD00006

PATIENT
  Age: 62 Year
  Sex: Male

DRUGS (12)
  1. COZAAR [Suspect]
     Route: 048
  2. DICLOFENAC SODIUM [Concomitant]
     Route: 048
  3. ISOSORBIDE MONONITRATE [Concomitant]
     Route: 048
  4. QUETIAPINE FUMARATE [Concomitant]
     Route: 048
  5. OXAZEPAM [Concomitant]
     Route: 048
  6. GEMFIBROZIL [Concomitant]
     Route: 048
  7. TIMOPTIC [Concomitant]
     Route: 047
  8. SIMVASTATIN [Concomitant]
     Route: 048
  9. METOPROLOL SUCCINATE [Concomitant]
     Route: 048
  10. CITALOPRAM [Concomitant]
     Route: 048
     Dates: end: 20090525
  11. CITALOPRAM [Concomitant]
     Route: 048
     Dates: start: 20090526
  12. ALLOPURINOL [Concomitant]
     Route: 048

REACTIONS (3)
  - AGGRESSION [None]
  - DEATH [None]
  - SUICIDE ATTEMPT [None]
